FAERS Safety Report 10690486 (Version 1)
Quarter: 2015Q1

REPORT INFORMATION
  Report Type: Spontaneous
  Country: US (occurrence: None)
  Receive Date: 20150102
  Receipt Date: 20150102
  Transmission Date: 20150720
  Serious: Yes (Hospitalization)
  Sender: FDA-Public Use
  Company Number: None

PATIENT
  Age: 25 Year
  Sex: Female
  Weight: 92.99 kg

DRUGS (1)
  1. VOL-PLUS [Suspect]
     Active Substance: .ALPHA.-TOCOPHEROL ACETATE, DL-\.BETA.-CAROTENE\ASCORBIC ACID\CALCIUM SULFATE\CHOLECALCIFEROL\CUPRIC OXIDE\CYANOCOBALAMIN\FERROUS FUMARATE\FOLIC ACID\NIACINAMIDE\PYRIDOXINE HYDROCHLORIDE\RIBOFLAVIN\THIAMINE MONONITRATE\VITAMIN A ACETATE\ZINC OXIDE
     Indication: PRENATAL CARE
     Route: 048
     Dates: start: 20141207, end: 20141229

REACTIONS (9)
  - Diarrhoea [None]
  - Bedridden [None]
  - Headache [None]
  - Dyspnoea [None]
  - Nausea [None]
  - Vomiting [None]
  - Loss of consciousness [None]
  - Maternal exposure during pregnancy [None]
  - Impaired work ability [None]

NARRATIVE: CASE EVENT DATE: 20141210
